FAERS Safety Report 6056837-9 (Version None)
Quarter: 2009Q1

REPORT INFORMATION
  Report Type: 
  Country: None (occurrence: None)
  Receive Date: 20090126
  Receipt Date: 20090126
  Transmission Date: 20090719
  Serious: Yes (Other)
  Sender: FDA-Public Use
  Company Number: None

PATIENT
  Sex: Female
  Weight: 70.82 kg

DRUGS (9)
  1. IBUPROFEN TABLETS [Suspect]
     Dosage: 800MG TABLET 800 MG TID ORAL
     Route: 048
     Dates: start: 20081105, end: 20090123
  2. ANUSOL HC SUPPOSITORY (HYDROCORTISONE ACETATE) [Concomitant]
  3. FLAGYL [Concomitant]
  4. METHYLPREDNISOLONE [Concomitant]
  5. NAPROSYN [Concomitant]
  6. OXYCODONE HCL [Concomitant]
  7. PRILOSEC [Concomitant]
  8. ROXICET ORAL SOLUTION (OXYCODONE+APAP LIQUID) [Concomitant]
  9. TYLENOL (CAPLET) [Concomitant]

REACTIONS (1)
  - GASTROINTESTINAL DISORDER [None]
